FAERS Safety Report 18567785 (Version 1)
Quarter: 2020Q4

REPORT INFORMATION
  Report Type: Spontaneous
  Country: US (occurrence: US)
  Receive Date: 20201202
  Receipt Date: 20201202
  Transmission Date: 20210114
  Serious: No
  Sender: FDA-Public Use
  Company Number: US-JNJFOC-20201147826

PATIENT
  Sex: Female

DRUGS (3)
  1. TUMS [Concomitant]
     Active Substance: CALCIUM CARBONATE
     Indication: PRODUCT USED FOR UNKNOWN INDICATION
     Route: 065
  2. PEPCID [Suspect]
     Active Substance: FAMOTIDINE
     Indication: VOMITING
     Route: 065
  3. ZANTAC [Concomitant]
     Active Substance: RANITIDINE HYDROCHLORIDE
     Indication: VOMITING
     Route: 065

REACTIONS (4)
  - Off label use [Unknown]
  - Therapeutic response unexpected [Unknown]
  - Exposure during pregnancy [Unknown]
  - Product use in unapproved indication [Unknown]
